FAERS Safety Report 6730868-5 (Version None)
Quarter: 2010Q2

REPORT INFORMATION
  Report Type: 
  Country: None (occurrence: None)
  Receive Date: 20100518
  Receipt Date: 20100505
  Transmission Date: 20101027
  Serious: Yes (Hospitalization)
  Sender: FDA-Public Use
  Company Number: PHFR2010GB00591

PATIENT

DRUGS (1)
  1. IMATINIB [Suspect]

REACTIONS (2)
  - OBSTRUCTIVE AIRWAYS DISORDER [None]
  - PALATAL OEDEMA [None]
